FAERS Safety Report 10463658 (Version 1)
Quarter: 2014Q3

REPORT INFORMATION
  Report Type: Spontaneous
  Country: US (occurrence: US)
  Receive Date: 20140919
  Receipt Date: 20140919
  Transmission Date: 20150326
  Serious: No
  Sender: FDA-Public Use
  Company Number: US-AMGEN-USASP2014070545

PATIENT
  Age: 53 Year
  Sex: Female

DRUGS (1)
  1. ENBREL [Suspect]
     Active Substance: ETANERCEPT
     Indication: PSORIATIC ARTHROPATHY
     Dosage: UNK, QWK
     Route: 065
     Dates: start: 201408

REACTIONS (5)
  - Wrong technique in drug usage process [Not Recovered/Not Resolved]
  - Injection site pain [Not Recovered/Not Resolved]
  - Incorrect dose administered [Recovered/Resolved]
  - Limb injury [Not Recovered/Not Resolved]
  - Injection site induration [Not Recovered/Not Resolved]

NARRATIVE: CASE EVENT DATE: 20140911
